FAERS Safety Report 5383484-4 (Version None)
Quarter: 2007Q3

REPORT INFORMATION
  Report Type: 
  Country: None (occurrence: None)
  Receive Date: 20070710
  Receipt Date: 20070627
  Transmission Date: 20080115
  Serious: Yes (Hospitalization)
  Sender: FDA-Public Use
  Company Number: DK-SHR-DK-2007-024464

PATIENT
  Age: 37 Year
  Sex: Female

DRUGS (1)
  1. YASMIN [Suspect]
     Dosage: 1 TAB(S), 21D/28D
     Route: 048
     Dates: start: 20031031, end: 20031126

REACTIONS (3)
  - COORDINATION ABNORMAL [None]
  - MUSCULAR WEAKNESS [None]
  - SENSORY DISTURBANCE [None]
